FAERS Safety Report 24028762 (Version 3)
Quarter: 2025Q2

REPORT INFORMATION
  Report Type: Spontaneous
  Country: US (occurrence: US)
  Receive Date: 20240628
  Receipt Date: 20250409
  Transmission Date: 20250717
  Serious: Yes (Hospitalization, Other)
  Sender: SANOFI AVENTIS
  Company Number: US-SA-SAC20240624000724

PATIENT
  Age: 42 Year
  Sex: Male
  Weight: 79 kg

DRUGS (28)
  1. DUPIXENT [Suspect]
     Active Substance: DUPILUMAB
     Indication: Psoriasis
     Dosage: 300 MG, QOW
     Route: 058
     Dates: start: 202011
  2. DUPIXENT [Suspect]
     Active Substance: DUPILUMAB
     Indication: Asthma
  3. SKYRIZI [Suspect]
     Active Substance: RISANKIZUMAB-RZAA
  4. BANOPHEN [Concomitant]
     Active Substance: DIPHENHYDRAMINE HYDROCHLORIDE
  5. BANOPHEN [Concomitant]
     Active Substance: DIPHENHYDRAMINE HYDROCHLORIDE
  6. DILTIAZEM [Concomitant]
     Active Substance: DILTIAZEM
  7. DILTIAZEM [Concomitant]
     Active Substance: DILTIAZEM
  8. GABAPENTIN [Concomitant]
     Active Substance: GABAPENTIN
  9. GABAPENTIN [Concomitant]
     Active Substance: GABAPENTIN
  10. OXCARBAZEPINE [Concomitant]
     Active Substance: OXCARBAZEPINE
  11. OXCARBAZEPINE [Concomitant]
     Active Substance: OXCARBAZEPINE
  12. OMEPRAZOLE [Concomitant]
     Active Substance: OMEPRAZOLE
     Indication: Gastrooesophageal reflux disease
  13. OMEPRAZOLE [Concomitant]
     Active Substance: OMEPRAZOLE
     Indication: Oesophagitis
  14. AZELASTINE HYDROCHLORIDE [Concomitant]
     Active Substance: AZELASTINE HYDROCHLORIDE
  15. MONTELUKAST SODIUM [Concomitant]
     Active Substance: MONTELUKAST SODIUM
     Indication: Asthma
  16. MONTELUKAST SODIUM [Concomitant]
     Active Substance: MONTELUKAST SODIUM
  17. TRELEGY ELLIPTA [Concomitant]
     Active Substance: FLUTICASONE FUROATE\UMECLIDINIUM BROMIDE\VILANTEROL TRIFENATATE
  18. DIAZEPAM [Concomitant]
     Active Substance: DIAZEPAM
  19. SEROQUEL [Concomitant]
     Active Substance: QUETIAPINE FUMARATE
  20. FENOFIBRATE [Concomitant]
     Active Substance: FENOFIBRATE
  21. ATORVASTATIN CALCIUM [Concomitant]
     Active Substance: ATORVASTATIN CALCIUM
  22. CELEBREX [Concomitant]
     Active Substance: CELECOXIB
  23. VENTOLIN HFA [Concomitant]
     Active Substance: ALBUTEROL SULFATE
  24. AIMOVIG [Concomitant]
     Active Substance: ERENUMAB-AOOE
  25. FAMOTIDINE [Concomitant]
     Active Substance: FAMOTIDINE
  26. KLOR-CON M10 [Concomitant]
     Active Substance: POTASSIUM CHLORIDE
  27. FUROSEMIDE [Concomitant]
     Active Substance: FUROSEMIDE
  28. TRILEPTAL [Concomitant]
     Active Substance: OXCARBAZEPINE

REACTIONS (8)
  - Spinal operation [Unknown]
  - Weight decreased [Unknown]
  - Fat tissue decreased [Unknown]
  - Multiple allergies [Unknown]
  - Condition aggravated [Unknown]
  - Back pain [Unknown]
  - Rash [Unknown]
  - Product use in unapproved indication [Unknown]

NARRATIVE: CASE EVENT DATE: 20201101
